FAERS Safety Report 13398097 (Version 1)
Quarter: 2017Q2

REPORT INFORMATION
  Report Type: Spontaneous
  Country: US (occurrence: US)
  Receive Date: 20170403
  Receipt Date: 20170403
  Transmission Date: 20170830
  Serious: Yes (Other)
  Sender: FDA-Public Use
  Company Number: US-PFIZER INC-2017135438

PATIENT
  Age: 44 Year
  Sex: Female

DRUGS (3)
  1. ADVIL [Suspect]
     Active Substance: IBUPROFEN
     Dosage: UNK
  2. MELOXICAM. [Suspect]
     Active Substance: MELOXICAM
     Dosage: UNK
  3. ETODOLAC. [Suspect]
     Active Substance: ETODOLAC
     Dosage: UNK

REACTIONS (4)
  - Haemorrhage [Unknown]
  - Drug hypersensitivity [Unknown]
  - Rectal haemorrhage [Unknown]
  - Abdominal discomfort [Unknown]
